FAERS Safety Report 5639763-6 (Version None)
Quarter: 2008Q1

REPORT INFORMATION
  Report Type: 
  Country: None (occurrence: None)
  Receive Date: 20080225
  Receipt Date: 20080213
  Transmission Date: 20080703
  Serious: Yes (Hospitalization)
  Sender: FDA-Public Use
  Company Number: B0509203A

PATIENT
  Age: 71 Year
  Sex: Female

DRUGS (1)
  1. FORTAZ [Suspect]
     Indication: PSEUDOMONAS INFECTION
     Dosage: THREE TIMES PER DAY / INTRA
     Dates: start: 20070203

REACTIONS (1)
  - CONFUSIONAL STATE [None]
